FAERS Safety Report 13126341 (Version 1)
Quarter: 2017Q1

REPORT INFORMATION
  Report Type: Spontaneous
  Country: GB (occurrence: GB)
  Receive Date: 20170118
  Receipt Date: 20170118
  Transmission Date: 20170428
  Serious: Yes (Hospitalization)
  Sender: FDA-Public Use
  Company Number: PHFR2017GB000562

PATIENT
  Age: 51 Year
  Sex: Male

DRUGS (4)
  1. NEORAL [Suspect]
     Active Substance: CYCLOSPORINE
     Dosage: 125 MG, QD
     Route: 065
     Dates: start: 19980721
  2. NEORAL [Suspect]
     Active Substance: CYCLOSPORINE
     Indication: PSORIASIS
     Dosage: 100 MG, BID
     Route: 065
     Dates: start: 19970924
  3. NEORAL [Suspect]
     Active Substance: CYCLOSPORINE
     Dosage: 100 MG, QD
     Route: 065
     Dates: start: 19990727, end: 20000218
  4. NEORAL [Suspect]
     Active Substance: CYCLOSPORINE
     Dosage: 75 MG, QD
     Route: 065
     Dates: start: 19981201

REACTIONS (8)
  - Skin lesion [Not Recovered/Not Resolved]
  - Creatinine renal clearance decreased [Unknown]
  - Alanine aminotransferase increased [Unknown]
  - Blood pressure increased [Not Recovered/Not Resolved]
  - Psoriasis [Unknown]
  - Haematuria [Unknown]
  - Blood bilirubin decreased [Unknown]
  - Feeling hot [Unknown]

NARRATIVE: CASE EVENT DATE: 19971022
